FAERS Safety Report 6125389-7 (Version None)
Quarter: 2009Q1

REPORT INFORMATION
  Report Type: 
  Country: None (occurrence: None)
  Receive Date: 20090317
  Receipt Date: 20090310
  Transmission Date: 20090719
  Serious: Yes (Life-Threatening, Hospitalization)
  Sender: FDA-Public Use
  Company Number: DSM-2009-00254

PATIENT
  Age: 89 Year
  Sex: Male

DRUGS (7)
  1. SEVIKAR (OLMESARTAN MEDOXOMIL)/AMLODIPINE) (TABLET) [Suspect]
     Indication: HYPERTENSION
     Dosage: 40MG/5MG, ORAL
     Route: 048
     Dates: start: 20090203, end: 20090305
  2. AMIODARON (AMIODARONE) (AMIODARONE) [Concomitant]
  3. CONCOR (BISOPROLOL FUMARATE (BISOPROLOL FUMARATE) [Concomitant]
  4. TORASEMID (TORASEMIDE) (TORASEMIDE) [Concomitant]
  5. MARCUMAR (PHENPROCOUMON) (PHENPROCOUMON) [Concomitant]
  6. BUDESONIDE [Concomitant]
  7. FORMOTEROL (FORMOTEROL) (FORMOTEROL) [Concomitant]

REACTIONS (6)
  - ATRIOVENTRICULAR BLOCK FIRST DEGREE [None]
  - BIFASCICULAR BLOCK [None]
  - ELECTROCARDIOGRAM QT PROLONGED [None]
  - HYPOTENSION [None]
  - SINUS BRADYCARDIA [None]
  - SYNCOPE [None]
